FAERS Safety Report 19486735 (Version 1)
Quarter: 2021Q3

REPORT INFORMATION
  Report Type: Spontaneous
  Country: US (occurrence: US)
  Receive Date: 20210701
  Receipt Date: 20210701
  Transmission Date: 20211014
  Serious: No
  Sender: FDA-Public Use
  Company Number: None

PATIENT
  Age: 73 Year
  Sex: Female
  Weight: 73.35 kg

DRUGS (5)
  1. SYNTHROID [Suspect]
     Active Substance: LEVOTHYROXINE SODIUM
     Indication: THYROID FUNCTION TEST ABNORMAL
     Dosage: ?          QUANTITY:1 TABLET(S);?
     Route: 048
  2. MELATONIN [Concomitant]
     Active Substance: MELATONIN
  3. ARNOR THYROID [Concomitant]
  4. SUMARTRIPTAN [Concomitant]
  5. LISINOPRIL. [Concomitant]
     Active Substance: LISINOPRIL

REACTIONS (9)
  - Diarrhoea [None]
  - Pain in extremity [None]
  - Peripheral swelling [None]
  - Arthralgia [None]
  - Bone pain [None]
  - Swelling [None]
  - Myalgia [None]
  - Gingival bleeding [None]
  - Muscle spasms [None]

NARRATIVE: CASE EVENT DATE: 20210603
